FAERS Safety Report 21133438 (Version 2)
Quarter: 2022Q3

REPORT INFORMATION
  Report Type: Report from Study
  Country: US (occurrence: US)
  Receive Date: 20220726
  Receipt Date: 20220830
  Transmission Date: 20221026
  Serious: Yes (Hospitalization)
  Sender: FDA-Public Use
  Company Number: US-KARYOPHARM-2022KPT000824

PATIENT
  Age: 72 Year
  Sex: Male
  Weight: 88.7 kg

DRUGS (7)
  1. SELINEXOR [Suspect]
     Active Substance: SELINEXOR
     Indication: Plasma cell myeloma
     Dosage: 60 MG, DAYS 1, 8, AND 15
     Route: 048
     Dates: start: 20220630, end: 20220715
  2. SELINEXOR [Suspect]
     Active Substance: SELINEXOR
     Dosage: 40 MG, DAYS 1, 8, AND 15
     Route: 048
     Dates: start: 20220810
  3. DARATUMUMAB [Suspect]
     Active Substance: DARATUMUMAB
     Indication: Plasma cell myeloma
     Dosage: 1800 MG, WEEKLY
     Route: 058
     Dates: start: 20220630, end: 202207
  4. DARATUMUMAB [Suspect]
     Active Substance: DARATUMUMAB
     Dosage: 1800 MG, WEEKLY
     Route: 058
     Dates: start: 20220810
  5. LENALIDOMIDE [Suspect]
     Active Substance: LENALIDOMIDE
     Indication: Plasma cell myeloma
     Dosage: 25 MG, DAILY FOR 21 DAYS
     Route: 048
     Dates: start: 20220630, end: 20220714
  6. DEXAMETHASONE [Suspect]
     Active Substance: DEXAMETHASONE
     Indication: Plasma cell myeloma
     Dosage: 20 MG, DAILY ON DAYS 1, 2, 8, 9, 15, 16, 22, AND 23
     Route: 048
     Dates: start: 20220630, end: 202207
  7. DEXAMETHASONE [Suspect]
     Active Substance: DEXAMETHASONE
     Dosage: 20 MG, DAILY ON DAYS 1, 2, 8, 9, 15, 16, 22, AND 23
     Route: 048
     Dates: start: 20220810

REACTIONS (2)
  - Febrile neutropenia [Recovered/Resolved]
  - Hypoxia [Recovered/Resolved]

NARRATIVE: CASE EVENT DATE: 20220715
